FAERS Safety Report 7816359-9 (Version None)
Quarter: 2011Q4

REPORT INFORMATION
  Report Type: 
  Country: None (occurrence: None)
  Receive Date: 20111017
  Receipt Date: 20111005
  Transmission Date: 20120403
  Serious: Yes (Hospitalization)
  Sender: FDA-Public Use
  Company Number: BR-BIOGENIDEC-2010BI044570

PATIENT
  Age: 49 Year
  Sex: Female

DRUGS (1)
  1. AVONEX [Suspect]
     Indication: MULTIPLE SCLEROSIS
     Route: 030
     Dates: start: 20100401

REACTIONS (8)
  - INJURY [None]
  - NASOPHARYNGITIS [None]
  - URINARY RETENTION [None]
  - ASTHENIA [None]
  - HAND FRACTURE [None]
  - INFLUENZA LIKE ILLNESS [None]
  - BALANCE DISORDER [None]
  - FATIGUE [None]
